FAERS Safety Report 5205350-7 (Version None)
Quarter: 2007Q1

REPORT INFORMATION
  Report Type: 
  Country: None (occurrence: None)
  Receive Date: 20070110
  Receipt Date: 20070104
  Transmission Date: 20070707
  Serious: Yes (Other)
  Sender: FDA-Public Use
  Company Number: US-BRISTOL-MYERS SQUIBB COMPANY-13557285

PATIENT
  Age: 78 Year
  Sex: Female

DRUGS (3)
  1. ABATACEPT [Suspect]
     Indication: RHEUMATOID ARTHRITIS
     Route: 042
     Dates: start: 20031106, end: 20060921
  2. METHOTREXATE [Concomitant]
     Route: 048
     Dates: start: 20010404
  3. RELAFEN [Concomitant]
     Dates: start: 19931027, end: 20061103

REACTIONS (1)
  - COLON CANCER [None]
